FAERS Safety Report 13864832 (Version 2)
Quarter: 2017Q4

REPORT INFORMATION
  Report Type: Spontaneous
  Country: GB (occurrence: GB)
  Receive Date: 20170814
  Receipt Date: 20171106
  Transmission Date: 20180320
  Serious: Yes (Other)
  Sender: FDA-Public Use
  Company Number: GB-PFIZER INC-2017344299

PATIENT
  Age: 41 Year
  Sex: Female
  Weight: 69 kg

DRUGS (1)
  1. SAYANA [Suspect]
     Active Substance: MEDROXYPROGESTERONE
     Indication: CONTRACEPTION
     Dosage: 104 MG, UNK
     Route: 058
     Dates: start: 20170322, end: 20170322

REACTIONS (3)
  - Headache [Unknown]
  - Hypoaesthesia [Unknown]
  - Speech disorder [Unknown]

NARRATIVE: CASE EVENT DATE: 20170322
